FAERS Safety Report 9750095 (Version 1)
Quarter: 2013Q4

REPORT INFORMATION
  Report Type: Spontaneous
  Country: US (occurrence: US)
  Receive Date: 20131212
  Receipt Date: 20131212
  Transmission Date: 20140711
  Serious: No
  Sender: FDA-Public Use
  Company Number: US-GILEAD-US-CVT-090825

PATIENT
  Sex: Male

DRUGS (14)
  1. RANEXA [Suspect]
     Indication: ANGINA PECTORIS
  2. ATENOLOL [Concomitant]
  3. MINITRAN [Concomitant]
  4. NITROSTAT [Concomitant]
  5. LOVASTATIN [Concomitant]
  6. AMLODIPINE [Concomitant]
  7. IMDUR [Concomitant]
  8. ENALAPRIL /00574901/ [Concomitant]
  9. CLONIDINE [Concomitant]
  10. GLIMEPIRIDE [Concomitant]
  11. METFORMIN                          /00082701/ [Concomitant]
  12. FEXOFENADINE [Concomitant]
  13. FISH OIL [Concomitant]
  14. KCL [Concomitant]

REACTIONS (1)
  - Dysgeusia [Unknown]
